FAERS Safety Report 17190892 (Version 1)
Quarter: 2019Q4

REPORT INFORMATION
  Report Type: Spontaneous
  Country: CA (occurrence: CA)
  Receive Date: 20191223
  Receipt Date: 20191223
  Transmission Date: 20200122
  Serious: Yes (Other)
  Sender: FDA-Public Use
  Company Number: CA-PFIZER INC-2019550360

PATIENT
  Age: 56 Year
  Sex: Male

DRUGS (2)
  1. LIPITOR [Concomitant]
     Active Substance: ATORVASTATIN CALCIUM
     Dosage: UNK
  2. PHENYTOIN. [Suspect]
     Active Substance: PHENYTOIN
     Indication: EPILEPSY
     Dosage: 400 MG, 1X/DAY
     Route: 048

REACTIONS (3)
  - Anticonvulsant drug level decreased [Recovered/Resolved]
  - Seizure [Recovered/Resolved]
  - Product substitution issue [Recovered/Resolved]
